FAERS Safety Report 12893025 (Version 2)
Quarter: 2016Q4

REPORT INFORMATION
  Report Type: Spontaneous
  Country: FR (occurrence: FR)
  Receive Date: 20161028
  Receipt Date: 20161114
  Transmission Date: 20170207
  Serious: Yes (Hospitalization, Other)
  Sender: FDA-Public Use
  Company Number: FR-INDIVIOR LIMITED-INDV-095921-2016

PATIENT
  Age: 43 Year
  Sex: Male

DRUGS (1)
  1. SUBUTEX [Suspect]
     Active Substance: BUPRENORPHINE HYDROCHLORIDE
     Indication: PRODUCT USED FOR UNKNOWN INDICATION
     Dosage: 16MG, DAILY
     Route: 042
     Dates: start: 2000

REACTIONS (4)
  - Injection site abscess [Recovered/Resolved]
  - Intentional product use issue [Recovering/Resolving]
  - Staphylococcal sepsis [Recovered/Resolved]
  - Hepatitis C [Unknown]

NARRATIVE: CASE EVENT DATE: 2001
